FAERS Safety Report 6390657-0 (Version None)
Quarter: 2009Q4

REPORT INFORMATION
  Report Type: 
  Country: None (occurrence: None)
  Receive Date: 20091006
  Receipt Date: 20090929
  Transmission Date: 20100525
  Serious: Yes (Other)
  Sender: FDA-Public Use
  Company Number: US-SANOFI-SYNTHELABO-A03200903866

PATIENT
  Sex: Male
  Weight: 73.9 kg

DRUGS (7)
  1. MULTAQ [Suspect]
     Indication: VENTRICULAR TACHYCARDIA
     Route: 048
     Dates: start: 20090804, end: 20090808
  2. MULTAQ [Suspect]
     Indication: LEFT VENTRICULAR DYSFUNCTION
     Route: 048
     Dates: start: 20090804, end: 20090808
  3. LASIX [Suspect]
     Indication: CARDIAC FAILURE CONGESTIVE
     Dosage: VARIOUS
     Route: 065
  4. ZOCOR [Concomitant]
     Indication: CORONARY ARTERY DISEASE
     Route: 065
  5. FLOMAX [Concomitant]
     Indication: BENIGN PROSTATIC HYPERPLASIA
     Route: 065
  6. GLIPIZIDE [Concomitant]
     Indication: DIABETES MELLITUS
     Route: 065
  7. CARVEDILOL [Concomitant]
     Indication: CARDIAC FAILURE CONGESTIVE
     Route: 065

REACTIONS (2)
  - BLOOD CREATININE INCREASED [None]
  - OFF LABEL USE [None]
